FAERS Safety Report 15736919 (Version 1)
Quarter: 2018Q4

REPORT INFORMATION
  Report Type: Spontaneous
  Country: US (occurrence: US)
  Receive Date: 20181218
  Receipt Date: 20181218
  Transmission Date: 20190205
  Serious: Yes (Other)
  Sender: FDA-Public Use
  Company Number: US-JNJFOC-20181208001

PATIENT
  Age: 62 Year
  Sex: Male

DRUGS (1)
  1. TREMFYA [Suspect]
     Active Substance: GUSELKUMAB
     Indication: PSORIASIS
     Dosage: AT WEEK 0, WEEK 4, AND EVERY 8 WEEKS THEREAFER
     Route: 065

REACTIONS (2)
  - Coronary artery bypass [Unknown]
  - Psoriasis [Unknown]

NARRATIVE: CASE EVENT DATE: 201808
